FAERS Safety Report 4524306-0 (Version None)
Quarter: 2004Q4

REPORT INFORMATION
  Report Type: 
  Country: None (occurrence: None)
  Receive Date: 20041119
  Receipt Date: 20040812
  Transmission Date: 20050328
  Serious: Yes (Hospitalization)
  Sender: FDA-Public Use
  Company Number: 208431

PATIENT
  Age: 49 Year
  Sex: Male

DRUGS (1)
  1. RAPTIVA [Suspect]
     Indication: PSORIASIS
     Dosage: 90 MG, SINGLE , SUBCUTANEOUS
     Route: 058
     Dates: start: 20040804, end: 20040804

REACTIONS (1)
  - INFLUENZA LIKE ILLNESS [None]
